FAERS Safety Report 4368289-5 (Version None)
Quarter: 2004Q2

REPORT INFORMATION
  Report Type: 
  Country: None (occurrence: None)
  Receive Date: 20040525
  Receipt Date: 20040511
  Transmission Date: 20050107
  Serious: Yes (Hospitalization)
  Sender: FDA-Public Use
  Company Number: 2004-00264FE

PATIENT
  Age: 63 Year
  Sex: Male

DRUGS (3)
  1. PENTASA [Suspect]
     Indication: COLITIS ULCERATIVE
     Dosage: 4 G ORALLY
     Route: 048
     Dates: start: 20000101
  2. VALPROIC ACID [Concomitant]
  3. BROMAZEPAM [Concomitant]

REACTIONS (3)
  - HAEMOGLOBIN DECREASED [None]
  - SYSTEMIC LUPUS ERYTHEMATOSUS [None]
  - WHITE BLOOD CELL COUNT DECREASED [None]
